FAERS Safety Report 11503016 (Version 1)
Quarter: 2015Q3

REPORT INFORMATION
  Report Type: Spontaneous
  Country: US (occurrence: US)
  Receive Date: 20150914
  Receipt Date: 20150914
  Transmission Date: 20151125
  Serious: No
  Sender: FDA-Public Use
  Company Number: US-ASTELLAS-2015US023442

PATIENT
  Age: 65 Year
  Sex: Male

DRUGS (1)
  1. XTANDI [Suspect]
     Active Substance: ENZALUTAMIDE
     Indication: PROSTATE CANCER
     Route: 048
     Dates: start: 201405

REACTIONS (8)
  - Abdominal distension [Unknown]
  - Hyperhidrosis [Unknown]
  - Sleep disorder [Unknown]
  - Dizziness [Unknown]
  - Abdominal discomfort [Unknown]
  - Blood glucose decreased [Unknown]
  - Eructation [Unknown]
  - Adverse event [Unknown]

NARRATIVE: CASE EVENT DATE: 20150703
